FAERS Safety Report 17607753 (Version 1)
Quarter: 2020Q1

REPORT INFORMATION
  Report Type: Report from Study
  Country: None (occurrence: AU)
  Receive Date: 20200331
  Receipt Date: 20200331
  Transmission Date: 20200409
  Serious: Yes (Hospitalization)
  Sender: FDA-Public Use
  Company Number: AU-ABBVIE-20P-008-3271147-00

PATIENT
  Age: 75 Year
  Sex: Male

DRUGS (10)
  1. GANGORTE [Concomitant]
     Indication: GLAUCOMA
     Route: 047
     Dates: start: 20130912
  2. PARACETAMOL [Concomitant]
     Active Substance: ACETAMINOPHEN
     Indication: HEADACHE
  3. VENETOCLAX. [Suspect]
     Active Substance: VENETOCLAX
     Route: 048
     Dates: start: 20191104, end: 20200128
  4. AZACITIDINE. [Suspect]
     Active Substance: AZACITIDINE
     Indication: MYELODYSPLASTIC SYNDROME
     Route: 058
     Dates: start: 20190902, end: 20200129
  5. VENETOCLAX. [Suspect]
     Active Substance: VENETOCLAX
     Indication: MYELODYSPLASTIC SYNDROME
     Route: 048
     Dates: start: 20190902, end: 20190915
  6. PARACETAMOL [Concomitant]
     Active Substance: ACETAMINOPHEN
     Indication: PYREXIA
     Dosage: PRN
     Route: 048
     Dates: start: 20190918
  7. VALACICLOVIR [Concomitant]
     Active Substance: VALACYCLOVIR HYDROCHLORIDE
     Indication: ANTIVIRAL PROPHYLAXIS
     Route: 048
     Dates: start: 20191014
  8. VORICANAZOLE [Concomitant]
     Indication: FUNGAL INFECTION
     Route: 048
     Dates: start: 20191026
  9. SIMBRINZA [Concomitant]
     Active Substance: BRIMONIDINE TARTRATE\BRINZOLAMIDE
     Indication: GLAUCOMA
     Route: 047
     Dates: start: 20130912
  10. VENETOCLAX. [Suspect]
     Active Substance: VENETOCLAX
     Route: 048
     Dates: start: 20200323

REACTIONS (1)
  - Bacteraemia [Recovered/Resolved]

NARRATIVE: CASE EVENT DATE: 20200206
